FAERS Safety Report 17387874 (Version 1)
Quarter: 2020Q1

REPORT INFORMATION
  Report Type: Spontaneous
  Country: US (occurrence: US)
  Receive Date: 20200123
  Receipt Date: 20200123
  Transmission Date: 20200409
  Serious: No
  Sender: FDA-Public Use
  Company Number: None

PATIENT
  Sex: Female

DRUGS (1)
  1. STIVARGA [Suspect]
     Active Substance: REGORAFENIB
     Dosage: ?          OTHER DOSE:2 TABS 40 MG;?
     Route: 048
     Dates: start: 20191126

REACTIONS (2)
  - Dysphagia [None]
  - Pharyngeal swelling [None]
